FAERS Safety Report 23067628 (Version 1)
Quarter: 2023Q4

REPORT INFORMATION
  Report Type: Spontaneous
  Country: US (occurrence: US)
  Receive Date: 20231016
  Receipt Date: 20231016
  Transmission Date: 20240109
  Serious: Yes (Other)
  Sender: FDA-Public Use
  Company Number: US-MLMSERVICE-20230921-4553802-1

PATIENT

DRUGS (1)
  1. FLUCONAZOLE [Suspect]
     Active Substance: FLUCONAZOLE
     Indication: Vulvovaginal candidiasis
     Dosage: 1 DOSAGE FORM, SINGLE
     Route: 048

REACTIONS (4)
  - Cellulitis [Unknown]
  - Nail ridging [Recovering/Resolving]
  - Herpes simplex [Unknown]
  - Fixed eruption [Recovering/Resolving]
